FAERS Safety Report 19175172 (Version 2)
Quarter: 2021Q2

REPORT INFORMATION
  Report Type: Spontaneous
  Country: GR (occurrence: GR)
  Receive Date: 20210423
  Receipt Date: 20210505
  Transmission Date: 20210717
  Serious: Yes (Other)
  Sender: FDA-Public Use
  Company Number: GR-JNJFOC-20210436618

PATIENT
  Age: 36 Year
  Sex: Female
  Weight: 68 kg

DRUGS (2)
  1. TOPAMAC [Suspect]
     Active Substance: TOPIRAMATE
     Indication: EPILEPSY
     Route: 048
     Dates: start: 20141120, end: 2015
  2. STILNOX [Concomitant]
     Active Substance: ZOLPIDEM TARTRATE

REACTIONS (1)
  - Blindness transient [Recovered/Resolved]
